FAERS Safety Report 21504165 (Version 1)
Quarter: 2022Q4

REPORT INFORMATION
  Report Type: Spontaneous
  Country: CN (occurrence: CN)
  Receive Date: 20221025
  Receipt Date: 20221025
  Transmission Date: 20230113
  Serious: Yes (Other)
  Sender: FDA-Public Use
  Company Number: CN-PFIZER INC-PV202200087955

PATIENT
  Age: 39 Year
  Sex: Male
  Weight: 90 kg

DRUGS (2)
  1. TYGACIL [Suspect]
     Active Substance: TIGECYCLINE
     Indication: Necrotising fasciitis
     Dosage: 100 MG, 2X/DAY
     Route: 041
     Dates: start: 20221004, end: 20221012
  2. LEVOFLOXACIN [Suspect]
     Active Substance: LEVOFLOXACIN
     Indication: Necrotising fasciitis
     Dosage: 0.5 G, 1X/DAY
     Route: 041
     Dates: start: 20221004, end: 20221012

REACTIONS (6)
  - Haematemesis [Recovering/Resolving]
  - Nausea [Recovering/Resolving]
  - Vomiting [Recovering/Resolving]
  - Hiccups [Recovering/Resolving]
  - Gastrointestinal motility disorder [Recovering/Resolving]
  - Off label use [Unknown]

NARRATIVE: CASE EVENT DATE: 20221005
